FAERS Safety Report 7535491-0 (Version None)
Quarter: 2011Q2

REPORT INFORMATION
  Report Type: 
  Country: None (occurrence: None)
  Receive Date: 20110609
  Receipt Date: 20110526
  Transmission Date: 20111010
  Serious: Yes (Hospitalization)
  Sender: FDA-Public Use
  Company Number: CH-JNJFOC-20110600641

PATIENT
  Age: 76 Year
  Sex: Female
  Weight: 88 kg

DRUGS (16)
  1. ALLOPURINOL [Suspect]
     Indication: GOUT
     Route: 048
     Dates: start: 20110407, end: 20110420
  2. LASIX [Suspect]
     Indication: ESSENTIAL HYPERTENSION
     Route: 048
     Dates: end: 20110419
  3. NEBIVOLOL HCL [Concomitant]
     Route: 065
  4. POTASSIUM CHLORIDE [Concomitant]
  5. ATACAND [Suspect]
     Indication: ESSENTIAL HYPERTENSION
     Route: 048
     Dates: end: 20110419
  6. IMPORTAL [Concomitant]
  7. ASPIRIN [Concomitant]
     Route: 065
  8. CALCIUM SANDOZ FORTE D [Concomitant]
  9. TEGRETOL [Suspect]
     Indication: PRODUCT USED FOR UNKNOWN INDICATION
     Route: 048
     Dates: start: 19920101, end: 20110419
  10. ACETAMINOPHEN [Suspect]
     Indication: ARTHRALGIA
     Route: 048
     Dates: end: 20110419
  11. FERRUM HAUSMANN [Concomitant]
     Route: 065
  12. OMEPRAZOLE [Suspect]
     Indication: PRODUCT USED FOR UNKNOWN INDICATION
     Route: 048
     Dates: end: 20110419
  13. BONVIVA [Concomitant]
     Route: 065
  14. PARLODEL [Concomitant]
     Route: 065
     Dates: start: 19930101
  15. TRAMADOL HCL [Suspect]
     Indication: ARTHRALGIA
     Route: 048
     Dates: end: 20110419
  16. ATORVASTATIN [Suspect]
     Indication: HYPERCHOLESTEROLAEMIA
     Route: 048
     Dates: start: 20000101, end: 20110419

REACTIONS (4)
  - HYPERBILIRUBINAEMIA [None]
  - HEPATOCELLULAR INJURY [None]
  - INTERNATIONAL NORMALISED RATIO INCREASED [None]
  - RENAL FAILURE ACUTE [None]
